FAERS Safety Report 16668848 (Version 1)
Quarter: 2019Q3

REPORT INFORMATION
  Report Type: Spontaneous
  Country: US (occurrence: US)
  Receive Date: 20190805
  Receipt Date: 20190805
  Transmission Date: 20191004
  Serious: Yes (Death)
  Sender: FDA-Public Use
  Company Number: None

PATIENT
  Age: 82 Year
  Sex: Male
  Weight: 67 kg

DRUGS (2)
  1. SUGAMMADEX [Suspect]
     Active Substance: SUGAMMADEX
     Indication: PARALYSIS
     Dosage: ?          OTHER FREQUENCY:ONCE;?
     Route: 006
  2. SUGAMMADEX [Concomitant]
     Active Substance: SUGAMMADEX
     Dates: start: 20190730, end: 20190730

REACTIONS (2)
  - Cardiac arrest [None]
  - Bradycardia [None]

NARRATIVE: CASE EVENT DATE: 20190730
